FAERS Safety Report 17760403 (Version 1)
Quarter: 2020Q2

REPORT INFORMATION
  Report Type: Spontaneous
  Country: PL (occurrence: PL)
  Receive Date: 20200508
  Receipt Date: 20200508
  Transmission Date: 20200714
  Serious: Yes (Life-Threatening, Hospitalization)
  Sender: FDA-Public Use
  Company Number: PL-ASTRAZENECA-2020SE59983

PATIENT
  Age: 54 Year
  Sex: Female

DRUGS (4)
  1. KETILEPT [Suspect]
     Active Substance: QUETIAPINE FUMARATE
     Indication: DRUG ABUSE
     Dosage: OVERDOSE, TOTAL DOSE SUMMARISED WITH KETILEPT RETARD: 3.2 G
     Route: 065
     Dates: start: 20200416, end: 20200416
  2. KETILEPT RETARD [Suspect]
     Active Substance: QUETIAPINE FUMARATE
     Indication: DRUG ABUSE
     Dosage: OVERDOSE, TOTAL DOSE SUMMARISED WITH KETILEPT: 3.2 G
     Route: 048
     Dates: start: 20200416, end: 20200416
  3. KETILEPT [Suspect]
     Active Substance: QUETIAPINE FUMARATE
     Indication: POISONING
     Dosage: OVERDOSE, TOTAL DOSE SUMMARISED WITH KETILEPT RETARD: 3.2 G
     Route: 065
     Dates: start: 20200416, end: 20200416
  4. KETILEPT RETARD [Suspect]
     Active Substance: QUETIAPINE FUMARATE
     Indication: POISONING
     Dosage: OVERDOSE, TOTAL DOSE SUMMARISED WITH KETILEPT: 3.2 G
     Route: 048
     Dates: start: 20200416, end: 20200416

REACTIONS (5)
  - Drug abuse [Unknown]
  - Psychomotor retardation [Not Recovered/Not Resolved]
  - Poisoning [Unknown]
  - Intentional overdose [Unknown]
  - Somnolence [Not Recovered/Not Resolved]

NARRATIVE: CASE EVENT DATE: 20200416
